FAERS Safety Report 11334260 (Version 21)
Quarter: 2016Q1

REPORT INFORMATION
  Report Type: Report from Study
  Country: CA (occurrence: CA)
  Receive Date: 20150803
  Receipt Date: 20160317
  Transmission Date: 20160525
  Serious: Yes (Hospitalization, Other)
  Sender: FDA-Public Use
  Company Number: CA-ABBVIE-15K-028-1434402-00

PATIENT
  Age: 66 Year
  Sex: Female
  Weight: 69.46 kg

DRUGS (5)
  1. CIPROFLOXACIN W/METRONIDAZOLE [Concomitant]
     Indication: PRODUCT USED FOR UNKNOWN INDICATION
  2. HUMIRA [Suspect]
     Active Substance: ADALIMUMAB
     Indication: CROHN^S DISEASE
     Route: 058
     Dates: start: 20090424, end: 201506
  3. HUMIRA [Suspect]
     Active Substance: ADALIMUMAB
     Route: 058
     Dates: start: 20150811
  4. METHOTREXATE [Concomitant]
     Active Substance: METHOTREXATE
     Indication: CROHN^S DISEASE
     Route: 048
  5. HUMIRA [Suspect]
     Active Substance: ADALIMUMAB
     Route: 058
     Dates: start: 20150723, end: 20150806

REACTIONS (28)
  - Disease susceptibility [Not Recovered/Not Resolved]
  - Wound [Recovered/Resolved]
  - Intestinal stenosis [Unknown]
  - Pain [Unknown]
  - C-reactive protein increased [Not Recovered/Not Resolved]
  - Small intestinal obstruction [Unknown]
  - Post procedural complication [Unknown]
  - Intestinal resection [Recovering/Resolving]
  - Abscess intestinal [Not Recovered/Not Resolved]
  - Abdominal abscess [Unknown]
  - Infection susceptibility increased [Not Recovered/Not Resolved]
  - Intestinal anastomosis complication [Unknown]
  - Abdominal abscess [Unknown]
  - Erythema [Unknown]
  - Impaired healing [Not Recovered/Not Resolved]
  - Crohn^s disease [Recovering/Resolving]
  - Abdominal mass [Unknown]
  - Decreased appetite [Recovering/Resolving]
  - Fistula [Recovered/Resolved]
  - Gastrointestinal inflammation [Unknown]
  - Abscess [Not Recovered/Not Resolved]
  - Abdominal abscess [Not Recovered/Not Resolved]
  - Oesophageal hypomotility [Unknown]
  - Fistula [Recovering/Resolving]
  - Abdominal pain [Unknown]
  - Abdominal pain [Unknown]
  - Local swelling [Not Recovered/Not Resolved]
  - Erythema [Not Recovered/Not Resolved]

NARRATIVE: CASE EVENT DATE: 2015
